FAERS Safety Report 8738761 (Version 2)
Quarter: 2012Q4

REPORT INFORMATION
  Report Type: 
  Country: US (occurrence: US)
  Receive Date: 20120823
  Receipt Date: 20121002
  Transmission Date: 20130627
  Serious: Yes (Hospitalization, Other)
  Sender: FDA-Public Use
  Company Number: US-PFIZER INC-2012205475

PATIENT
  Age: 77 Year
  Sex: Female
  Weight: 108 kg

DRUGS (2)
  1. LIPITOR [Suspect]
     Indication: BLOOD CHOLESTEROL INCREASED
     Dosage: UNK
     Route: 048
     Dates: end: 2012
  2. PLAVIX [Suspect]
     Indication: ATRIAL FIBRILLATION
     Dosage: 75 mg, daily
     Route: 048
     Dates: end: 2012

REACTIONS (3)
  - Diabetes mellitus [Unknown]
  - Somnolence [Unknown]
  - Weight decreased [Unknown]
